FAERS Safety Report 12212343 (Version 1)
Quarter: 2016Q1

REPORT INFORMATION
  Report Type: Other
  Country: US (occurrence: US)
  Receive Date: 20160325
  Receipt Date: 20160325
  Transmission Date: 20160526
  Serious: No
  Sender: FDA-Public Use
  Company Number: US-DEP_02585_2015

PATIENT
  Age: 80 Year
  Sex: Male

DRUGS (3)
  1. GRALISE [Suspect]
     Active Substance: GABAPENTIN
     Indication: BACK PAIN
     Dosage: SAMPLE PACK, TITRATED UP TO 1800 MG, ONCE DAILY AT SUPPERTIME
     Route: 048
     Dates: start: 201502
  2. GRALISE [Suspect]
     Active Substance: GABAPENTIN
     Indication: OFF LABEL USE
     Dosage: SAMPLE PACK, TITRATED UP TO 1800 MG, ONCE DAILY AT SUPPERTIME
     Route: 048
     Dates: start: 201502
  3. GRALISE [Suspect]
     Active Substance: GABAPENTIN
     Indication: NEUROPATHY PERIPHERAL
     Dosage: SAMPLE PACK, TITRATED UP TO 1800 MG, ONCE DAILY AT SUPPERTIME
     Route: 048
     Dates: start: 201502

REACTIONS (2)
  - Malaise [Unknown]
  - Mental impairment [Unknown]

NARRATIVE: CASE EVENT DATE: 20150311
